FAERS Safety Report 6240335-3 (Version None)
Quarter: 2009Q2

REPORT INFORMATION
  Report Type: 
  Country: None (occurrence: None)
  Receive Date: 20090623
  Receipt Date: 20080827
  Transmission Date: 20091009
  Serious: No
  Sender: FDA-Public Use
  Company Number: US-ASTRAZENECA-2008UW15373

PATIENT
  Age: 81 Year
  Sex: Female
  Weight: 60.8 kg

DRUGS (18)
  1. PULMICORT FLEXHALER [Suspect]
     Indication: ASTHMA
     Route: 055
  2. CALCIUM [Concomitant]
  3. ASPIRIN [Concomitant]
  4. M.V.I. [Concomitant]
  5. VITAMIN E [Concomitant]
  6. ASCORBIC ACID [Concomitant]
  7. VITAMIN D [Concomitant]
  8. VITAMIN-MINERAL COMPOUND TAB [Concomitant]
  9. SYNTHROID [Concomitant]
  10. ZYRTEC [Concomitant]
  11. COZAAR [Concomitant]
  12. LOVASTATIN [Concomitant]
  13. DILTIAZEM [Concomitant]
  14. NEXIUM [Concomitant]
  15. ACCOLATE [Concomitant]
  16. METOCLOPRAMIDE [Concomitant]
  17. FOSAMAX [Concomitant]
     Dosage: 1 X WEEK
  18. NASACORT [Concomitant]

REACTIONS (1)
  - LYMPHADENOPATHY [None]
